FAERS Safety Report 12717874 (Version 1)
Quarter: 2016Q3

REPORT INFORMATION
  Report Type: Spontaneous
  Country: CN (occurrence: CN)
  Receive Date: 20160906
  Receipt Date: 20160906
  Transmission Date: 20161109
  Serious: Yes (Disabling, Other)
  Sender: FDA-Public Use
  Company Number: CN-BAYER-2016-171025

PATIENT
  Age: 64 Year
  Sex: Female
  Weight: 46 kg

DRUGS (6)
  1. AVELOX [Suspect]
     Active Substance: MOXIFLOXACIN HYDROCHLORIDE
     Indication: INFECTION
     Dosage: 400 MG, QD
     Route: 048
     Dates: start: 20160623, end: 20160627
  2. ETHAMBUTOL [Suspect]
     Active Substance: ETHAMBUTOL HYDROCHLORIDE
     Indication: TUBERCULOSIS
     Dosage: 0.5 G, QD
     Route: 048
     Dates: start: 20160624, end: 20160630
  3. LORATADINE. [Suspect]
     Active Substance: LORATADINE
     Indication: ANTIALLERGIC THERAPY
     Dosage: UNK
     Dates: start: 20160628
  4. RIFAMPICIN [Suspect]
     Active Substance: RIFAMPIN
     Indication: TUBERCULOSIS
     Dosage: 0.45 G, QD
     Route: 048
     Dates: start: 20160622, end: 20160627
  5. ISONIAZID. [Suspect]
     Active Substance: ISONIAZID
     Indication: TUBERCULOSIS
     Dosage: 300 MG, QD
     Route: 048
     Dates: start: 20160622, end: 20160630
  6. CALCIUM GLUCONATE. [Suspect]
     Active Substance: CALCIUM GLUCONATE
     Indication: ANTIALLERGIC THERAPY
     Dosage: UNK
     Dates: start: 20160628

REACTIONS (4)
  - Face oedema [Recovering/Resolving]
  - Rash [Recovering/Resolving]
  - Skin exfoliation [Recovering/Resolving]
  - Pyrexia [Recovering/Resolving]

NARRATIVE: CASE EVENT DATE: 20160627
